FAERS Safety Report 19071896 (Version 1)
Quarter: 2021Q1

REPORT INFORMATION
  Report Type: Spontaneous
  Country: GB (occurrence: GB)
  Receive Date: 20210330
  Receipt Date: 20210330
  Transmission Date: 20210420
  Serious: Yes (Disabling, Other)
  Sender: FDA-Public Use
  Company Number: GB-ACCORD-220736

PATIENT
  Age: 2 Year
  Sex: Male

DRUGS (4)
  1. MONTELUKAST [Suspect]
     Active Substance: MONTELUKAST SODIUM
     Indication: ASTHMA
     Dosage: 4MG
     Route: 048
     Dates: start: 20131020, end: 20190902
  2. SERETIDE [Concomitant]
     Active Substance: FLUTICASONE PROPIONATE\SALMETEROL XINAFOATE
     Indication: ILL-DEFINED DISORDER
  3. CETIRIZINE [Concomitant]
     Active Substance: CETIRIZINE HYDROCHLORIDE
     Indication: ILL-DEFINED DISORDER
  4. SALBUTAMOL [Concomitant]
     Active Substance: ALBUTEROL
     Indication: ILL-DEFINED DISORDER

REACTIONS (5)
  - Sleep terror [Recovering/Resolving]
  - Night sweats [Recovered/Resolved]
  - Disturbance in attention [Not Recovered/Not Resolved]
  - Sleep disorder [Recovering/Resolving]
  - Speech disorder developmental [Not Recovered/Not Resolved]

NARRATIVE: CASE EVENT DATE: 20131114
